FAERS Safety Report 15592335 (Version 1)
Quarter: 2018Q4

REPORT INFORMATION
  Report Type: Report from Study
  Country: US (occurrence: US)
  Receive Date: 20181107
  Receipt Date: 20181107
  Transmission Date: 20190205
  Serious: Yes (Other)
  Sender: FDA-Public Use
  Company Number: US-GILEAD-2018-0372996

PATIENT
  Age: 45 Year
  Sex: Male

DRUGS (3)
  1. OXYGEN. [Concomitant]
     Active Substance: OXYGEN
  2. AMBRISENTAN [Suspect]
     Active Substance: AMBRISENTAN
     Indication: PRODUCT USED FOR UNKNOWN INDICATION
     Dosage: 5 MG, QD
     Route: 065
     Dates: end: 2018
  3. SYNTHROID [Concomitant]
     Active Substance: LEVOTHYROXINE SODIUM

REACTIONS (2)
  - Tracheostomy [Not Recovered/Not Resolved]
  - Sluggishness [Not Recovered/Not Resolved]
